FAERS Safety Report 25321189 (Version 2)
Quarter: 2025Q2

REPORT INFORMATION
  Report Type: Report from Study
  Country: US (occurrence: US)
  Receive Date: 20250515
  Receipt Date: 20250526
  Transmission Date: 20250716
  Serious: Yes (Other)
  Sender: ABBVIE
  Company Number: US-ABBVIE-6276382

PATIENT
  Age: 41 Year
  Sex: Female
  Weight: 70.306 kg

DRUGS (1)
  1. SKYRIZI [Suspect]
     Active Substance: RISANKIZUMAB-RZAA
     Indication: Crohn^s disease
     Dosage: FORM STRENGTH: 360 MILLIGRAM
     Route: 058
     Dates: start: 202311

REACTIONS (8)
  - Cerebral venous sinus thrombosis [Not Recovered/Not Resolved]
  - Pseudostroke [Recovered/Resolved]
  - Diarrhoea [Not Recovered/Not Resolved]
  - Precancerous lesion of digestive tract [Recovered/Resolved]
  - Gastrointestinal disorder [Not Recovered/Not Resolved]
  - Nausea [Recovered/Resolved]
  - Headache [Not Recovered/Not Resolved]
  - Influenza like illness [Recovered/Resolved]

NARRATIVE: CASE EVENT DATE: 20231101
